FAERS Safety Report 6143150-4 (Version None)
Quarter: 2009Q2

REPORT INFORMATION
  Report Type: 
  Country: None (occurrence: None)
  Receive Date: 20090401
  Receipt Date: 20090318
  Transmission Date: 20091009
  Serious: Yes (Other)
  Sender: FDA-Public Use
  Company Number: 2009-193536-NL

PATIENT
  Age: 36 Year
  Sex: Female
  Weight: 56.2 kg

DRUGS (4)
  1. NUVARING [Suspect]
     Indication: HORMONE REPLACEMENT THERAPY
     Dosage: VAGINAL
     Route: 067
     Dates: start: 20090101
  2. VIVELLE-DOT [Concomitant]
  3. CARBIDOPA [Concomitant]
  4. LEVODOPA [Concomitant]

REACTIONS (6)
  - DIZZINESS [None]
  - DYSARTHRIA [None]
  - DYSMENORRHOEA [None]
  - GENITAL HAEMORRHAGE [None]
  - PHOTOPSIA [None]
  - SENSATION OF HEAVINESS [None]
